FAERS Safety Report 8841327 (Version 1)
Quarter: 2012Q4

REPORT INFORMATION
  Report Type: 
  Country: US (occurrence: US)
  Receive Date: 20121015
  Receipt Date: 20121015
  Transmission Date: 20130627
  Serious: Yes (Other)
  Sender: FDA-Public Use
  Company Number: US-PFIZER INC-2012255124

PATIENT
  Sex: Male

DRUGS (1)
  1. PRISTIQ [Suspect]
     Dosage: UNK

REACTIONS (3)
  - Hypoglycaemia [Unknown]
  - Hypothermia [Unknown]
  - Mental status changes [Unknown]
